FAERS Safety Report 4425949-5 (Version None)
Quarter: 2004Q3

REPORT INFORMATION
  Report Type: 
  Country: None (occurrence: None)
  Receive Date: 20040719
  Receipt Date: 20040526
  Transmission Date: 20050211
  Serious: No
  Sender: FDA-Public Use
  Company Number: A03200401710

PATIENT
  Sex: Male

DRUGS (1)
  1. UROXATRAL [Suspect]
     Dosage: 10 MG OD - ORAL
     Route: 048
     Dates: start: 20040521, end: 20040524

REACTIONS (1)
  - ARTHRALGIA [None]
